FAERS Safety Report 5522582-9 (Version None)
Quarter: 2007Q4

REPORT INFORMATION
  Report Type: 
  Country: None (occurrence: None)
  Receive Date: 20071120
  Receipt Date: 20071113
  Transmission Date: 20080405
  Serious: Yes (Other)
  Sender: FDA-Public Use
  Company Number: US-ASTRAZENECA-2007UW26276

PATIENT
  Age: 77 Year
  Sex: Female
  Weight: 68 kg

DRUGS (3)
  1. ARIMIDEX [Suspect]
     Indication: BREAST CANCER FEMALE
     Route: 048
     Dates: start: 20050101, end: 20070101
  2. THYROID TAB [Concomitant]
  3. DILTIAZEM [Concomitant]

REACTIONS (8)
  - ARTHRALGIA [None]
  - BONE DENSITY DECREASED [None]
  - BONE PAIN [None]
  - COUGH [None]
  - CYSTITIS [None]
  - HOT FLUSH [None]
  - MUSCULOSKELETAL DISCOMFORT [None]
  - VULVOVAGINAL DRYNESS [None]
